FAERS Safety Report 18882999 (Version 1)
Quarter: 2021Q1

REPORT INFORMATION
  Report Type: Spontaneous
  Country: US (occurrence: US)
  Receive Date: 20210211
  Receipt Date: 20210211
  Transmission Date: 20210420
  Serious: No
  Sender: FDA-Public Use
  Company Number: US-RIGEL PHARMACEUTICALS, INC.-2020FOS000694

PATIENT
  Sex: Male

DRUGS (1)
  1. TAVALISSE [Suspect]
     Active Substance: FOSTAMATINIB
     Indication: IMMUNE THROMBOCYTOPENIA
     Dosage: 150 MG, BID
     Route: 048
     Dates: start: 20200929

REACTIONS (2)
  - Platelet count abnormal [Unknown]
  - Muscle strain [Unknown]

NARRATIVE: CASE EVENT DATE: 2020
